FAERS Safety Report 14809692 (Version 1)
Quarter: 2018Q2

REPORT INFORMATION
  Report Type: Spontaneous
  Country: US (occurrence: US)
  Receive Date: 20180425
  Receipt Date: 20180425
  Transmission Date: 20180711
  Serious: No
  Sender: FDA-Public Use
  Company Number: US-AMGEN-USASP2018021539

PATIENT
  Age: 76 Year
  Sex: Female

DRUGS (1)
  1. REPATHA [Suspect]
     Active Substance: EVOLOCUMAB
     Indication: LOW DENSITY LIPOPROTEIN INCREASED
     Dosage: UNK
     Route: 065
     Dates: start: 20180214

REACTIONS (5)
  - Feeling jittery [Unknown]
  - Tremor [Unknown]
  - Palpitations [Unknown]
  - Hypertension [Unknown]
  - Malaise [Unknown]

NARRATIVE: CASE EVENT DATE: 20180214
